FAERS Safety Report 13524937 (Version 1)
Quarter: 2017Q2

REPORT INFORMATION
  Report Type: Spontaneous
  Country: US (occurrence: US)
  Receive Date: 20170508
  Receipt Date: 20170508
  Transmission Date: 20170830
  Serious: No
  Sender: FDA-Public Use
  Company Number: US-ROCHE-1127935

PATIENT
  Sex: Male

DRUGS (3)
  1. AVASTIN [Suspect]
     Active Substance: BEVACIZUMAB
     Indication: BRAIN NEOPLASM MALIGNANT
     Route: 065
     Dates: start: 20080820
  2. TEMODAR [Concomitant]
     Active Substance: TEMOZOLOMIDE
  3. AVASTIN [Suspect]
     Active Substance: BEVACIZUMAB
     Route: 065
     Dates: start: 20080912

REACTIONS (4)
  - Aphasia [Recovering/Resolving]
  - Lethargy [Unknown]
  - Back pain [Unknown]
  - Gait disturbance [Unknown]
